FAERS Safety Report 5468793-2 (Version None)
Quarter: 2007Q3

REPORT INFORMATION
  Report Type: 
  Country: None (occurrence: None)
  Receive Date: 20070926
  Receipt Date: 20070914
  Transmission Date: 20080115
  Serious: Yes (Other)
  Sender: FDA-Public Use
  Company Number: US-PFIZER INC-2007076896

PATIENT
  Sex: Female

DRUGS (1)
  1. CHANTIX [Suspect]

REACTIONS (6)
  - ABDOMINAL PAIN UPPER [None]
  - FLATULENCE [None]
  - NAUSEA [None]
  - NOCTURIA [None]
  - SWOLLEN TONGUE [None]
  - VAGINAL DISORDER [None]
